FAERS Safety Report 19651715 (Version 10)
Quarter: 2022Q2

REPORT INFORMATION
  Report Type: Spontaneous
  Country: GB (occurrence: GB)
  Receive Date: 20210803
  Receipt Date: 20220407
  Transmission Date: 20220721
  Serious: Yes (Death, Hospitalization, Other)
  Sender: FDA-Public Use
  Company Number: GB-ROCHE-2844078

PATIENT
  Age: 67 Year
  Sex: Female
  Weight: 65.9 kg

DRUGS (53)
  1. CARBOPLATIN [Suspect]
     Active Substance: CARBOPLATIN
     Indication: Small cell lung cancer extensive stage
     Route: 065
     Dates: start: 20210401
  2. ATEZOLIZUMAB [Suspect]
     Active Substance: ATEZOLIZUMAB
     Indication: Small cell lung cancer extensive stage
     Dosage: DATE OF MOST RECENT DOSE 10-JUN-2021
     Route: 041
     Dates: start: 20210401
  3. ETOPOSIDE [Suspect]
     Active Substance: ETOPOSIDE
     Indication: Small cell lung cancer extensive stage
     Route: 048
     Dates: start: 20210423
  4. ETOPOSIDE [Suspect]
     Active Substance: ETOPOSIDE
     Route: 065
     Dates: start: 20210401
  5. SENNA [Concomitant]
     Active Substance: SENNA LEAF\SENNOSIDES\SENNOSIDES A AND B
     Indication: Product used for unknown indication
     Dosage: UNKNOWN
     Route: 065
     Dates: start: 202103, end: 20210419
  6. SENNA [Concomitant]
     Active Substance: SENNA LEAF\SENNOSIDES\SENNOSIDES A AND B
     Dosage: UNKNOWN
     Route: 065
     Dates: start: 20211114
  7. AMLODIPINE [Concomitant]
     Active Substance: AMLODIPINE BESYLATE
     Indication: Product used for unknown indication
     Dosage: UNKNOWN
     Route: 065
     Dates: start: 2011
  8. AMOXICILLIN [Concomitant]
     Active Substance: AMOXICILLIN
     Indication: Product used for unknown indication
     Dosage: UNKNOWN
     Route: 065
     Dates: start: 20210427
  9. AMOXICILLIN [Concomitant]
     Active Substance: AMOXICILLIN
     Dosage: UNKNOWN
     Route: 065
     Dates: start: 202104, end: 202105
  10. AMOXICILLIN\CLAVULANATE POTASSIUM [Concomitant]
     Active Substance: AMOXICILLIN\CLAVULANATE POTASSIUM
     Indication: Product used for unknown indication
     Dosage: 500/125 MG
     Route: 065
     Dates: start: 20210522, end: 20210531
  11. BISACODYL [Concomitant]
     Active Substance: BISACODYL
     Indication: Constipation
     Dosage: UNKNOWN
     Route: 065
     Dates: start: 20210426
  12. BISACODYL [Concomitant]
     Active Substance: BISACODYL
     Route: 065
     Dates: start: 20210426
  13. BISOPROLOL [Concomitant]
     Active Substance: BISOPROLOL
     Indication: Product used for unknown indication
     Dosage: UNKNOWN
     Route: 065
     Dates: start: 2019
  14. DEXAMETHASONE [Concomitant]
     Active Substance: DEXAMETHASONE
     Indication: Product used for unknown indication
     Dosage: UNKNOWN
     Route: 065
     Dates: start: 20210422, end: 20210422
  15. DEXAMETHASONE [Concomitant]
     Active Substance: DEXAMETHASONE
     Route: 065
     Dates: start: 20210610, end: 20210610
  16. DEXAMETHASONE [Concomitant]
     Active Substance: DEXAMETHASONE
     Route: 065
     Dates: start: 20210513, end: 20210513
  17. DEXAMETHASONE [Concomitant]
     Active Substance: DEXAMETHASONE
     Route: 065
     Dates: start: 20210410, end: 20210410
  18. DOCUSATE SODIUM [Concomitant]
     Active Substance: DOCUSATE SODIUM
     Indication: Abdominal pain
     Dosage: UNKNOWN
     Route: 065
     Dates: start: 20210620
  19. DOCUSATE SODIUM [Concomitant]
     Active Substance: DOCUSATE SODIUM
     Dosage: UNKNOWN
     Route: 065
     Dates: start: 20210601
  20. FILGRASTIM [Concomitant]
     Active Substance: FILGRASTIM
     Indication: Product used for unknown indication
     Dosage: 30 MILLION UNITS/0.5 ML
     Route: 065
     Dates: start: 20210625, end: 20210628
  21. FORTISIP COMPACT PROTEIN [Concomitant]
     Indication: Product used for unknown indication
     Dosage: UNKNOWN
     Route: 065
     Dates: start: 20210620
  22. GLYCERIN [Concomitant]
     Active Substance: GLYCERIN
     Indication: Constipation
     Dosage: UNKNOWN
     Route: 065
     Dates: start: 20210430
  23. GLYCERIN [Concomitant]
     Active Substance: GLYCERIN
     Dosage: UNKNOWN
     Route: 065
     Dates: start: 20211114, end: 20211121
  24. METOCLOPRAMIDE [Concomitant]
     Active Substance: METOCLOPRAMIDE
     Indication: Nausea
     Route: 065
     Dates: start: 20210620
  25. METOCLOPRAMIDE [Concomitant]
     Active Substance: METOCLOPRAMIDE
     Indication: Vomiting
     Route: 065
     Dates: start: 20210620
  26. MOVICOL [Concomitant]
     Active Substance: POLYETHYLENE GLYCOL 3350\POTASSIUM CHLORIDE\SODIUM BICARBONATE\SODIUM CHLORIDE
     Indication: Constipation
     Dosage: UNKNOWN
     Route: 065
     Dates: start: 20210427
  27. NICOTINE [Concomitant]
     Active Substance: NICOTINE
     Indication: Nicotine dependence
     Route: 062
     Dates: start: 20210522
  28. NICOTINE [Concomitant]
     Active Substance: NICOTINE
     Route: 048
     Dates: start: 20210522
  29. CHLORAL HYDRATE [Concomitant]
     Active Substance: CHLORAL HYDRATE
     Indication: Product used for unknown indication
     Dosage: UNKNOWN
     Route: 065
     Dates: start: 20210522
  30. ONDANSETRON [Concomitant]
     Active Substance: ONDANSETRON
     Indication: Product used for unknown indication
     Route: 065
     Dates: start: 20210610, end: 20210610
  31. ONDANSETRON [Concomitant]
     Active Substance: ONDANSETRON
     Route: 065
     Dates: start: 20210513, end: 20210513
  32. ACETAMINOPHEN [Concomitant]
     Active Substance: ACETAMINOPHEN
     Indication: Product used for unknown indication
     Route: 065
     Dates: start: 20210522
  33. ACETAMINOPHEN [Concomitant]
     Active Substance: ACETAMINOPHEN
     Dosage: UNKNOWN
     Route: 065
     Dates: start: 20210620
  34. ACETAMINOPHEN [Concomitant]
     Active Substance: ACETAMINOPHEN
     Dosage: UNKNOWN
     Route: 042
     Dates: start: 20211112
  35. ACETAMINOPHEN [Concomitant]
     Active Substance: ACETAMINOPHEN
     Dosage: UNKNOWN
     Route: 065
  36. SODIUM PHOSPHATE, MONOBASIC, ANHYDROUS [Concomitant]
     Active Substance: SODIUM PHOSPHATE, MONOBASIC, ANHYDROUS
     Indication: Product used for unknown indication
     Dosage: UNKNOWN
     Route: 065
     Dates: start: 20210527, end: 20210529
  37. RAMIPRIL [Concomitant]
     Active Substance: RAMIPRIL
     Indication: Product used for unknown indication
     Dosage: UNKNOWN
     Route: 065
     Dates: start: 2011
  38. SANDO-K [Concomitant]
     Indication: Product used for unknown indication
     Dosage: EFFERVESCENT
     Route: 065
     Dates: start: 20210623, end: 20210626
  39. SENNOSIDES A AND B [Concomitant]
     Active Substance: SENNOSIDES A AND B
     Indication: Constipation
     Dosage: UNKNOWN
     Route: 065
     Dates: start: 20210522
  40. THIAMINE [Concomitant]
     Active Substance: THIAMINE
     Indication: Vitamin B1 deficiency
     Dosage: UNKNOWN
     Route: 065
     Dates: start: 20210624, end: 20210628
  41. MEROPENEM [Concomitant]
     Active Substance: MEROPENEM
     Indication: Product used for unknown indication
     Dosage: UNKNOWN
     Route: 065
     Dates: start: 20210620, end: 202106
  42. OTC SUPPOSITORIES [Concomitant]
     Indication: Constipation
     Dosage: UNKNOWN
     Route: 065
  43. ZOLPIDEM TARTRATE [Concomitant]
     Active Substance: ZOLPIDEM TARTRATE
     Indication: Product used for unknown indication
     Dosage: UNKNOWN
     Route: 065
  44. CALCIUM CARBONATE\SODIUM ALGINATE\SODIUM BICARBONATE [Concomitant]
     Active Substance: CALCIUM CARBONATE\SODIUM ALGINATE\SODIUM BICARBONATE
     Indication: Dyspepsia
     Dosage: 10-20 ML
     Route: 048
     Dates: start: 20210620
  45. VITAMIN B CO STRONG [Concomitant]
     Indication: Product used for unknown indication
     Dosage: UNKNOWN
     Route: 065
  46. GRANULOCYTE COLONY-STIMULATING FACTOR NOS [Concomitant]
     Active Substance: GRANULOCYTE COLONY-STIMULATING FACTOR NOS
     Indication: Product used for unknown indication
     Dosage: UNKNOWN
     Route: 065
  47. COSMOCOL [Concomitant]
     Indication: Product used for unknown indication
     Dosage: UNKNOWN
     Route: 065
  48. CALCIUM CARBONATE\SODIUM ALGINATE\SODIUM BICARBONATE [Concomitant]
     Active Substance: CALCIUM CARBONATE\SODIUM ALGINATE\SODIUM BICARBONATE
     Indication: Product used for unknown indication
     Dosage: UNKNOWN
     Route: 065
  49. ANISEED [Concomitant]
     Indication: Dyspepsia
     Dosage: 10-20 ML
     Route: 048
  50. BUPIVACAINE [Concomitant]
     Active Substance: BUPIVACAINE
     Indication: Product used for unknown indication
     Dosage: UNKNOWN
     Route: 065
     Dates: start: 20211121
  51. MORPHINE [Concomitant]
     Active Substance: MORPHINE
     Indication: Product used for unknown indication
     Dosage: UNKNOWN
     Route: 065
     Dates: start: 20211121
  52. ACETAMINOPHEN [Concomitant]
     Active Substance: ACETAMINOPHEN
     Indication: Product used for unknown indication
     Dosage: UNKNOWN
     Route: 065
     Dates: start: 20211122
  53. POLYETHYLENE GLYCOL 3350\POTASSIUM CHLORIDE\SODIUM BICARBONATE\SODIUM [Concomitant]
     Active Substance: POLYETHYLENE GLYCOL 3350\POTASSIUM CHLORIDE\SODIUM BICARBONATE\SODIUM CHLORIDE
     Indication: Product used for unknown indication
     Dosage: UNKNOWN
     Route: 065

REACTIONS (21)
  - Thrombocytopenia [Recovered/Resolved]
  - Abdominal pain [Not Recovered/Not Resolved]
  - Constipation [Not Recovered/Not Resolved]
  - Immune-mediated enterocolitis [Recovered/Resolved]
  - Endometrial cancer [Not Recovered/Not Resolved]
  - Neutropenic sepsis [Recovered/Resolved]
  - Back pain [Not Recovered/Not Resolved]
  - Asthenia [Unknown]
  - Colitis [Unknown]
  - Body temperature decreased [Recovered/Resolved]
  - Nausea [Unknown]
  - Vomiting [Unknown]
  - Large intestinal obstruction [Fatal]
  - Intestinal obstruction [Unknown]
  - Diverticulum [Unknown]
  - Lung consolidation [Unknown]
  - Abdominal abscess [Unknown]
  - Diverticulitis [Unknown]
  - Surgery [Unknown]
  - Large intestine perforation [Unknown]
  - Anxiety [Unknown]

NARRATIVE: CASE EVENT DATE: 20210401
